FAERS Safety Report 4611165-0 (Version None)
Quarter: 2005Q1

REPORT INFORMATION
  Report Type: 
  Country: None (occurrence: None)
  Receive Date: 20050315
  Receipt Date: 20050315
  Transmission Date: 20050727
  Serious: Yes (Other)
  Sender: FDA-Public Use
  Company Number: None

PATIENT
  Sex: Female

DRUGS (1)
  1. ORTHO-NOVUM 7/7/7-28 [Suspect]
     Indication: CONTRACEPTION
     Dosage: AS DIRECTED

REACTIONS (2)
  - ABDOMINAL PAIN UPPER [None]
  - HAEMORRHAGE [None]
